FAERS Safety Report 5876807-0 (Version None)
Quarter: 2008Q3

REPORT INFORMATION
  Report Type: 
  Country: None (occurrence: None)
  Receive Date: 20080908
  Receipt Date: 20080908
  Transmission Date: 20090109
  Serious: Yes (Disabling, Other)
  Sender: FDA-Public Use
  Company Number: None

PATIENT
  Age: 70 Year
  Sex: Female
  Weight: 61.6892 kg

DRUGS (2)
  1. LABETALOL HCL [Suspect]
     Indication: HYPERTENSION
     Dosage: 1 TABLET ONE PER DAY PO
     Route: 048
     Dates: start: 20060924, end: 20080415
  2. LABETALOL HCL [Suspect]
     Indication: HYPERTENSION
     Dosage: 1 TABLET ONE PER DAY PO
     Route: 048
     Dates: start: 20080415, end: 20080906

REACTIONS (2)
  - DEFAECATION URGENCY [None]
  - GASTROINTESTINAL PAIN [None]
